FAERS Safety Report 6125177-1 (Version None)
Quarter: 2009Q1

REPORT INFORMATION
  Report Type: 
  Country: None (occurrence: None)
  Receive Date: 20090316
  Receipt Date: 20090306
  Transmission Date: 20090719
  Serious: Yes (Hospitalization, Other)
  Sender: FDA-Public Use
  Company Number: AEUSA200900035

PATIENT
  Sex: Male

DRUGS (1)
  1. GAMUNEX [Suspect]
     Indication: DRUG USE FOR UNKNOWN INDICATION
     Dosage: IV
     Route: 042

REACTIONS (3)
  - OBSTRUCTIVE UROPATHY [None]
  - PROSTATOMEGALY [None]
  - RENAL FAILURE ACUTE [None]
